FAERS Safety Report 5816558-1 (Version None)
Quarter: 2008Q3

REPORT INFORMATION
  Report Type: 
  Country: None (occurrence: None)
  Receive Date: 20080721
  Receipt Date: 20080414
  Transmission Date: 20090109
  Serious: Yes (Other)
  Sender: FDA-Public Use
  Company Number: GB-BAXTER-2008BH007482

PATIENT
  Age: 40 Year
  Sex: Female

DRUGS (2)
  1. SEVOFLURANE [Suspect]
     Indication: DRUG USE FOR UNKNOWN INDICATION
     Dosage: DOSE UNIT:UNKNOWN
     Dates: start: 20080101
  2. CEFUROXIME [Concomitant]

REACTIONS (1)
  - JAUNDICE CHOLESTATIC [None]
